FAERS Safety Report 8491858-8 (Version None)
Quarter: 2012Q3

REPORT INFORMATION
  Report Type: 
  Country: None (occurrence: None)
  Receive Date: 20120706
  Receipt Date: 20110803
  Transmission Date: 20120928
  Serious: Yes (Other)
  Sender: FDA-Public Use
  Company Number: US-GLAXOSMITHKLINE-A0939536A

PATIENT
  Age: 12 Year
  Sex: Male

DRUGS (5)
  1. TYLENOL W/ CODEINE [Concomitant]
     Dosage: 15ML SIX TIMES PER DAY
     Dates: start: 20110720, end: 20110730
  2. NASACORT [Concomitant]
     Route: 045
     Dates: start: 20110511
  3. XOPENEX [Concomitant]
     Route: 055
     Dates: end: 20110401
  4. FLOVENT [Suspect]
     Indication: ASTHMA
     Dosage: 1PUFF TWICE PER DAY
     Route: 055
  5. ALBUTEROL [Concomitant]

REACTIONS (2)
  - ASTHMA [None]
  - WEIGHT INCREASED [None]
